FAERS Safety Report 4464874-0 (Version None)
Quarter: 2004Q4

REPORT INFORMATION
  Report Type: 
  Country: None (occurrence: None)
  Receive Date: 20041004
  Receipt Date: 20031223
  Transmission Date: 20050328
  Serious: Yes (Hospitalization)
  Sender: FDA-Public Use
  Company Number: US-GLAXOSMITHKLINE-A0444159A

PATIENT

DRUGS (1)
  1. COREG [Suspect]
     Indication: CARDIAC FAILURE
     Route: 048

REACTIONS (2)
  - CARDIAC FAILURE [None]
  - OVERDOSE [None]
